FAERS Safety Report 11694541 (Version 1)
Quarter: 2015Q4

REPORT INFORMATION
  Report Type: Spontaneous
  Country: US (occurrence: US)
  Receive Date: 20151103
  Receipt Date: 20151103
  Transmission Date: 20160304
  Serious: No
  Sender: FDA-Public Use
  Company Number: US-BAYER-2015-455362

PATIENT
  Age: 21 Year
  Sex: Female
  Weight: 72.56 kg

DRUGS (13)
  1. OXYTROL FOR WOMEN [Suspect]
     Active Substance: OXYBUTYNIN
     Indication: INCONTINENCE
     Dosage: 1 DF, EVERY 4 DAYS
     Route: 061
     Dates: start: 201002
  2. NUTROPIN [Concomitant]
     Active Substance: SOMATROPIN
  3. CITICOLINE [Concomitant]
     Active Substance: CITICOLINE
  4. VITAMIN D3 [Concomitant]
     Active Substance: CHOLECALCIFEROL
  5. DESMOPRESSIN [Concomitant]
     Active Substance: DESMOPRESSIN
  6. IDEBENONE [Concomitant]
     Active Substance: IDEBENONE
  7. METHYLPHENIDATE. [Concomitant]
     Active Substance: METHYLPHENIDATE
  8. AGGRENOX [Concomitant]
     Active Substance: ASPIRIN\DIPYRIDAMOLE
  9. VIVELLE [ETHINYLESTRADIOL,NORGESTIMATE] [Concomitant]
  10. SYNTHROID [Concomitant]
     Active Substance: LEVOTHYROXINE SODIUM
  11. TIZANIDINE. [Concomitant]
     Active Substance: TIZANIDINE
  12. CORTEF [HYDROCORTISONE] [Concomitant]
  13. NUVIGIL [Concomitant]
     Active Substance: ARMODAFINIL

REACTIONS (1)
  - Product use issue [None]

NARRATIVE: CASE EVENT DATE: 201002
